FAERS Safety Report 15468064 (Version 1)
Quarter: 2018Q4

REPORT INFORMATION
  Report Type: Spontaneous
  Country: SA (occurrence: SA)
  Receive Date: 20181005
  Receipt Date: 20181005
  Transmission Date: 20190204
  Serious: Yes (Other)
  Sender: FDA-Public Use
  Company Number: SA-TELIGENT, INC-IGIL20180566

PATIENT
  Age: 11 Year
  Sex: Male
  Weight: 28 kg

DRUGS (3)
  1. CALCIPOTRIOL [Concomitant]
     Active Substance: CALCIPOTRIENE
     Indication: PUSTULAR PSORIASIS
     Dosage: UNKNOWN
     Route: 061
  2. BETAMETHASONE DIPROPIONATE. [Suspect]
     Active Substance: BETAMETHASONE DIPROPIONATE
     Dosage: APPLY OVER AFFECTED AREAS INCLUDING FACE, ARMS, TRUNK, LOWER LIMBS
     Route: 061
  3. BETAMETHASONE DIPROPIONATE. [Suspect]
     Active Substance: BETAMETHASONE DIPROPIONATE
     Indication: PUSTULAR PSORIASIS
     Dosage: APPLY OVER AFFECTED AREAS INCLUDING FACE, ARMS, TRUNK, LOWER LIMBS
     Route: 061

REACTIONS (8)
  - Osteopenia [Unknown]
  - Bone disorder [Unknown]
  - Pain [Unknown]
  - Traumatic fracture [Unknown]
  - Wrist fracture [Unknown]
  - Quality of life decreased [Unknown]
  - Bone pain [Unknown]
  - Osteoporosis [Unknown]
